FAERS Safety Report 12434638 (Version 1)
Quarter: 2016Q2

REPORT INFORMATION
  Report Type: Report from Study
  Country: US (occurrence: US)
  Receive Date: 20160603
  Receipt Date: 20160603
  Transmission Date: 20160815
  Serious: Yes (Hospitalization, Other)
  Sender: FDA-Public Use
  Company Number: US-TEVA-663596USA

PATIENT
  Sex: Male
  Weight: 81.72 kg

DRUGS (5)
  1. CLOZAPINE. [Suspect]
     Active Substance: CLOZAPINE
     Indication: SCHIZOAFFECTIVE DISORDER
     Dosage: 50MG IN THE MORNING AND 150MG AT BEDTIME
     Route: 065
  2. COGENTIN [Concomitant]
     Active Substance: BENZTROPINE MESYLATE
     Indication: SCHIZOAFFECTIVE DISORDER
  3. DEPAKOTE [Concomitant]
     Active Substance: DIVALPROEX SODIUM
     Indication: SCHIZOAFFECTIVE DISORDER
  4. VALIUM [Concomitant]
     Active Substance: DIAZEPAM
     Indication: SCHIZOAFFECTIVE DISORDER
  5. LITHIUM. [Concomitant]
     Active Substance: LITHIUM
     Indication: SCHIZOAFFECTIVE DISORDER

REACTIONS (7)
  - Fatigue [Unknown]
  - Depressed level of consciousness [Unknown]
  - Respiratory disorder [Unknown]
  - Hypophagia [Unknown]
  - Unresponsive to stimuli [Unknown]
  - Somnolence [Unknown]
  - Drug level decreased [Unknown]
